FAERS Safety Report 8297115-7 (Version None)
Quarter: 2012Q2

REPORT INFORMATION
  Report Type: 
  Country: None (occurrence: None)
  Receive Date: 20120419
  Receipt Date: 20120416
  Transmission Date: 20120825
  Serious: No
  Sender: FDA-Public Use
  Company Number: US-PFIZER INC-2012094231

PATIENT
  Sex: Male

DRUGS (1)
  1. GENOTROPIN [Suspect]
     Indication: BLOOD GROWTH HORMONE ABNORMAL
     Dosage: UNK
     Dates: start: 20120124

REACTIONS (2)
  - RASH [None]
  - INCORRECT ROUTE OF DRUG ADMINISTRATION [None]
